FAERS Safety Report 8314955-6 (Version None)
Quarter: 2012Q2

REPORT INFORMATION
  Report Type: 
  Country: None (occurrence: None)
  Receive Date: 20120426
  Receipt Date: 20120419
  Transmission Date: 20120825
  Serious: Yes (Hospitalization, Disabling, Other)
  Sender: FDA-Public Use
  Company Number: US-MERCK-1006USA02170

PATIENT
  Age: 70 Year
  Sex: Female
  Weight: 62 kg

DRUGS (4)
  1. FOSAMAX PLUS D [Suspect]
     Indication: OSTEOPOROSIS
     Route: 048
     Dates: start: 20011001, end: 20040701
  2. FOSAMAX PLUS D [Suspect]
     Indication: OSTEOPENIA
     Route: 048
     Dates: start: 20011001, end: 20040701
  3. FOSAMAX [Suspect]
     Route: 048
     Dates: start: 20010201, end: 20071201
  4. CALCIUM (UNSPECIFIED) [Concomitant]
     Indication: OSTEOPOROSIS
     Route: 065

REACTIONS (30)
  - OSTEONECROSIS OF JAW [None]
  - ASTHMA [None]
  - ORAL PAIN [None]
  - HYPOAESTHESIA [None]
  - GINGIVITIS [None]
  - NASOPHARYNGITIS [None]
  - ADNEXA UTERI MASS [None]
  - ENDOMETRIAL HYPOPLASIA [None]
  - ORAL DISORDER [None]
  - TOOTH FRACTURE [None]
  - OVARIAN CYST [None]
  - TOOTH ABSCESS [None]
  - SLEEP DISORDER [None]
  - BREAST FIBROSIS [None]
  - RASH [None]
  - DRUG HYPERSENSITIVITY [None]
  - UPPER-AIRWAY COUGH SYNDROME [None]
  - HYPERLIPIDAEMIA [None]
  - CYSTITIS [None]
  - KYPHOSCOLIOSIS [None]
  - PATHOLOGICAL FRACTURE [None]
  - PULMONARY FIBROSIS [None]
  - JAW DISORDER [None]
  - UTERINE DISORDER [None]
  - CHRONIC OBSTRUCTIVE PULMONARY DISEASE [None]
  - CERVICAL POLYP [None]
  - OTITIS EXTERNA [None]
  - TOOTH DISORDER [None]
  - FURUNCLE [None]
  - DENTAL ALVEOLAR ANOMALY [None]
